FAERS Safety Report 10266103 (Version 4)
Quarter: 2015Q3

REPORT INFORMATION
  Report Type: Report from Study
  Country: FR (occurrence: FR)
  Receive Date: 20140627
  Receipt Date: 20150925
  Transmission Date: 20151125
  Serious: Yes (Hospitalization, Other)
  Sender: FDA-Public Use
  Company Number: PHHO2014FR008441

PATIENT
  Age: 84 Year
  Sex: Female
  Weight: 66 kg

DRUGS (2)
  1. PARACETAMOL SANDOZ [Suspect]
     Active Substance: ACETAMINOPHEN
     Indication: PRODUCT USED FOR UNKNOWN INDICATION
     Dosage: UNK
     Route: 065
  2. BKM120 [Suspect]
     Active Substance: BUPARLISIB HYDROCHLORIDE
     Indication: THYROID CANCER METASTATIC
     Dosage: 100 MG, UNK
     Route: 048
     Dates: start: 20140416, end: 20140610

REACTIONS (2)
  - Hepatocellular injury [Recovered/Resolved with Sequelae]
  - Haematoma [Recovered/Resolved]

NARRATIVE: CASE EVENT DATE: 20140610
